FAERS Safety Report 6457494-X (Version None)
Quarter: 2009Q4

REPORT INFORMATION
  Report Type: 
  Country: None (occurrence: None)
  Receive Date: 20091125
  Receipt Date: 20091111
  Transmission Date: 20100525
  Serious: Yes (Hospitalization, Other)
  Sender: FDA-Public Use
  Company Number: PHHY2009RS49925

PATIENT
  Age: 44 Year
  Sex: Male

DRUGS (3)
  1. LEPONEX [Suspect]
     Dosage: 300 MG,DAILY
  2. VALPROIC ACID [Concomitant]
  3. HALDOL [Concomitant]
     Route: 030

REACTIONS (3)
  - CONFUSIONAL STATE [None]
  - HYPOTONIA [None]
  - ORTHOSTATIC HYPOTENSION [None]
